FAERS Safety Report 8245067-8 (Version None)
Quarter: 2012Q1

REPORT INFORMATION
  Report Type: 
  Country: None (occurrence: None)
  Receive Date: 20120329
  Receipt Date: 20110622
  Transmission Date: 20120608
  Serious: Yes (Other)
  Sender: FDA-Public Use
  Company Number: US-GLAXOSMITHKLINE-A0932466A

PATIENT
  Age: 77 Year
  Sex: Female

DRUGS (3)
  1. ADVAIR DISKUS 100/50 [Suspect]
     Indication: CHRONIC OBSTRUCTIVE PULMONARY DISEASE
     Dosage: 2PUFF TWICE PER DAY
     Route: 055
     Dates: start: 20070101
  2. ALBUTEROL [Concomitant]
  3. IPRATROPIUM [Concomitant]
     Route: 055

REACTIONS (9)
  - HYPERSENSITIVITY [None]
  - PRURITUS [None]
  - RASH [None]
  - PNEUMONIA [None]
  - VISUAL IMPAIRMENT [None]
  - HEADACHE [None]
  - DECREASED IMMUNE RESPONSIVENESS [None]
  - VISION BLURRED [None]
  - ABNORMAL SENSATION IN EYE [None]
